FAERS Safety Report 6253371-8 (Version None)
Quarter: 2009Q3

REPORT INFORMATION
  Report Type: 
  Country: None (occurrence: None)
  Receive Date: 20090701
  Receipt Date: 20090618
  Transmission Date: 20100115
  Serious: Yes (Hospitalization)
  Sender: FDA-Public Use
  Company Number: PHHY2008CA31083

PATIENT
  Sex: Male

DRUGS (1)
  1. EXJADE [Suspect]
     Indication: WALDENSTROM'S MACROGLOBULINAEMIA
     Dosage: 1000 MG
     Route: 048
     Dates: start: 20080301

REACTIONS (2)
  - GASTROINTESTINAL SURGERY [None]
  - MALAISE [None]
